FAERS Safety Report 6212745-1 (Version None)
Quarter: 2009Q2

REPORT INFORMATION
  Report Type: 
  Country: None (occurrence: None)
  Receive Date: 20090603
  Receipt Date: 20090527
  Transmission Date: 20091009
  Serious: Yes (Life-Threatening, Hospitalization, Other)
  Sender: FDA-Public Use
  Company Number: IT-BRISTOL-MYERS SQUIBB COMPANY-14635361

PATIENT
  Age: 42 Year
  Sex: Female

DRUGS (6)
  1. METFORMIN HCL [Suspect]
  2. VALPROATE SODIUM [Concomitant]
  3. CITALOPRAM HYDROBROMIDE [Concomitant]
  4. SODIUM BICARBONATE [Concomitant]
     Indication: METABOLIC ACIDOSIS
     Dosage: 400MMOL ADMINISTRED IN THE FIRST 6HRS, 5 MICROGRAM/KILOGRAM/MIN
     Route: 042
  5. DOPAMINE HCL [Concomitant]
     Route: 042
  6. CLAVULIN [Concomitant]
     Indication: PNEUMONIA
     Route: 042

REACTIONS (11)
  - ACUTE RESPIRATORY DISTRESS SYNDROME [None]
  - ALCOHOL POISONING [None]
  - COMA [None]
  - HEPATIC FAILURE [None]
  - HYPEROSMOLAR STATE [None]
  - LACTIC ACIDOSIS [None]
  - PANCREATIC INJURY [None]
  - PNEUMONIA [None]
  - RENAL FAILURE [None]
  - RHABDOMYOLYSIS [None]
  - SHOCK [None]
